FAERS Safety Report 4823938-X (Version None)
Quarter: 2005Q4

REPORT INFORMATION
  Report Type: 
  Country: None (occurrence: None)
  Receive Date: 20051107
  Receipt Date: 20051026
  Transmission Date: 20060501
  Serious: Yes (Other)
  Sender: FDA-Public Use
  Company Number: 2005142169

PATIENT
  Age: 36 Year
  Sex: Female
  Weight: 68.0396 kg

DRUGS (1)
  1. BEXTRA [Suspect]
     Indication: DYSMENORRHOEA
     Dates: start: 20040101, end: 20050501

REACTIONS (8)
  - C-REACTIVE PROTEIN INCREASED [None]
  - GALLBLADDER PAIN [None]
  - HEPATIC PAIN [None]
  - INFLAMMATION [None]
  - LIVER DISORDER [None]
  - MULTI-ORGAN DISORDER [None]
  - RENAL PAIN [None]
  - STEVENS-JOHNSON SYNDROME [None]
